FAERS Safety Report 6382265-2 (Version None)
Quarter: 2009Q3

REPORT INFORMATION
  Report Type: 
  Country: None (occurrence: None)
  Receive Date: 20090925
  Receipt Date: 20090917
  Transmission Date: 20100115
  Serious: Yes (Death, Hospitalization)
  Sender: FDA-Public Use
  Company Number: 384753

PATIENT
  Age: 70 Year
  Sex: Male

DRUGS (3)
  1. EPIRUBICIN HYDROCHLORIDE INJECTION       (EPIRUBICIN) [Suspect]
     Indication: DRUG USE FOR UNKNOWN INDICATION
  2. CAPECITABINE [Suspect]
     Indication: OESOPHAGEAL CANCER METASTATIC
     Dosage: 3600 MG, ORAL
     Route: 048
     Dates: start: 20090603, end: 20090708
  3. OXALIPLATIN [Suspect]
     Indication: DRUG USE FOR UNKNOWN INDICATION

REACTIONS (11)
  - BLOOD PHOSPHORUS DECREASED [None]
  - COUGH [None]
  - DYSPNOEA [None]
  - HAEMOGLOBIN DECREASED [None]
  - MALIGNANT NEOPLASM PROGRESSION [None]
  - NAUSEA [None]
  - NIGHT SWEATS [None]
  - OESOPHAGEAL CANCER METASTATIC [None]
  - PLATELET COUNT DECREASED [None]
  - PYREXIA [None]
  - WHITE BLOOD CELL COUNT DECREASED [None]
